FAERS Safety Report 8816425 (Version 1)
Quarter: 2012Q4

REPORT INFORMATION
  Report Type: Spontaneous
  Country: US (occurrence: None)
  Receive Date: 20120928
  Receipt Date: 20120928
  Transmission Date: 20130627
  Serious: Yes (Other)
  Sender: FDA-Public Use
  Company Number: None

PATIENT
  Age: 55 Year
  Sex: Male

DRUGS (1)
  1. ERGOCALCIFEROL [Suspect]
     Indication: VITAMIN D DECREASED
     Dosage: 1 tablet a week po
3rd dose was 9/15/2012
     Route: 048

REACTIONS (9)
  - Decreased appetite [None]
  - Pain [None]
  - Asthenia [None]
  - Loss of control of legs [None]
  - Confusional state [None]
  - Dysgeusia [None]
  - Insomnia [None]
  - Fatigue [None]
  - Irritability [None]
